FAERS Safety Report 10689784 (Version 4)
Quarter: 2017Q3

REPORT INFORMATION
  Report Type: Spontaneous
  Country: US (occurrence: US)
  Receive Date: 20150105
  Receipt Date: 20170808
  Transmission Date: 20171127
  Serious: Yes (Hospitalization)
  Sender: FDA-Public Use
  Company Number: US-PFIZER INC-2014363428

PATIENT
  Age: 75 Year
  Sex: Male

DRUGS (2)
  1. SUTENT [Suspect]
     Active Substance: SUNITINIB MALATE
     Indication: HEPATIC CANCER
     Dosage: 37.5 MG, 1X/DAY
     Dates: end: 20141210
  2. SUTENT [Suspect]
     Active Substance: SUNITINIB MALATE
     Indication: LYMPHOMA
     Dosage: 37.5 MG, 1X/DAY
     Dates: start: 20141120

REACTIONS (8)
  - Product use in unapproved indication [Unknown]
  - Platelet count decreased [Recovered/Resolved]
  - Diarrhoea [Not Recovered/Not Resolved]
  - Asthenia [Not Recovered/Not Resolved]
  - Lymphoma [Unknown]
  - Stomatitis [Recovered/Resolved]
  - Dehydration [Recovered/Resolved]
  - Disease progression [Unknown]

NARRATIVE: CASE EVENT DATE: 20141215
